FAERS Safety Report 8960726 (Version 1)
Quarter: 2012Q4

REPORT INFORMATION
  Report Type: 
  Country: US (occurrence: US)
  Receive Date: 20121212
  Receipt Date: 20121212
  Transmission Date: 20130627
  Serious: Yes (Other)
  Sender: FDA-Public Use
  Company Number: US-PFIZER INC-2012306838

PATIENT
  Age: 50 Year
  Sex: Female
  Weight: 43 kg

DRUGS (8)
  1. PREMPRO [Suspect]
     Indication: MENOPAUSAL SYMPTOMS
     Dosage: UNK
     Route: 048
     Dates: start: 20121201, end: 20121202
  2. PREMPRO [Suspect]
     Indication: HOT FLASHES
  3. PREMPRO [Suspect]
     Indication: ANXIETY
  4. PREMPRO [Suspect]
     Indication: DEPRESSION
  5. PREMPRO [Suspect]
     Indication: OSTEOPENIA
  6. PREMPHASE [Suspect]
     Indication: HOT FLUSH
     Dosage: UNK
  7. PREMPHASE [Suspect]
     Indication: ANXIETY
  8. PREMPHASE [Suspect]
     Indication: DEPRESSION

REACTIONS (6)
  - Hypertension [Recovered/Resolved]
  - Palpitations [Recovered/Resolved]
  - Tension headache [Recovered/Resolved]
  - Dyspepsia [Recovered/Resolved]
  - Feeling abnormal [Recovered/Resolved]
  - Muscle tightness [Recovered/Resolved]
